FAERS Safety Report 6785136-2 (Version None)
Quarter: 2010Q2

REPORT INFORMATION
  Report Type: 
  Country: None (occurrence: None)
  Receive Date: 20100622
  Receipt Date: 20100611
  Transmission Date: 20101027
  Serious: Yes (Hospitalization)
  Sender: FDA-Public Use
  Company Number: JP-ROCHE-680689

PATIENT
  Sex: Female
  Weight: 65 kg

DRUGS (21)
  1. TOCILIZUMAB [Suspect]
     Indication: RHEUMATOID ARTHRITIS
     Route: 041
     Dates: start: 20080715, end: 20080715
  2. TOCILIZUMAB [Suspect]
     Route: 041
     Dates: start: 20080812, end: 20080812
  3. TOCILIZUMAB [Suspect]
     Route: 041
     Dates: start: 20080909, end: 20080909
  4. TOCILIZUMAB [Suspect]
     Route: 041
     Dates: start: 20081010, end: 20081010
  5. TOCILIZUMAB [Suspect]
     Route: 041
     Dates: start: 20081112, end: 20081112
  6. TOCILIZUMAB [Suspect]
     Route: 041
     Dates: start: 20081210, end: 20081210
  7. TOCILIZUMAB [Suspect]
     Route: 041
     Dates: start: 20090107, end: 20090107
  8. TOCILIZUMAB [Suspect]
     Route: 041
     Dates: start: 20090204, end: 20090204
  9. TOCILIZUMAB [Suspect]
     Route: 041
     Dates: start: 20090304, end: 20090304
  10. TOCILIZUMAB [Suspect]
     Route: 041
     Dates: start: 20090409, end: 20090409
  11. TOCILIZUMAB [Suspect]
     Route: 041
     Dates: start: 20090508, end: 20090508
  12. TOCILIZUMAB [Suspect]
     Route: 041
     Dates: start: 20090605, end: 20090605
  13. TOCILIZUMAB [Suspect]
     Route: 041
     Dates: start: 20090703
  14. PREDNISOLONE [Concomitant]
     Dosage: DOSE FORM: ORAL FORMULATION (NOT OTHERWISE SPECIFIED)
     Route: 048
     Dates: end: 20080919
  15. PREDNISOLONE [Concomitant]
     Dosage: DOSE FORM: ORAL FORMULATION (NOT OTHERWISE SPECIFIED)
     Route: 048
     Dates: start: 20080920, end: 20081209
  16. PREDNISOLONE [Concomitant]
     Dosage: DOSE FORM: ORAL FORMULATION (NOT OTHERWISE SPECIFIED)
     Route: 048
     Dates: start: 20081210
  17. MUCOSTA [Concomitant]
     Route: 048
  18. MAGLAX [Concomitant]
     Dosage: DOSE FORM: ORAL FORMULATION (NOT OTHERWISE SPECIFIED)
     Route: 048
  19. MOBIC [Concomitant]
     Route: 048
  20. CALFINA [Concomitant]
     Route: 048
  21. CEVIMELINE HYDROCHLORIDE [Concomitant]
     Dosage: DRUG NAME: SALIGREN(CEVIMELINE HYDROCHLORIDE HYDRATE)
     Route: 048
     Dates: start: 20080719

REACTIONS (1)
  - OESOPHAGEAL CARCINOMA [None]
